FAERS Safety Report 18875749 (Version 1)
Quarter: 2021Q1

REPORT INFORMATION
  Report Type: Spontaneous
  Country: US (occurrence: US)
  Receive Date: 20210210
  Receipt Date: 20210210
  Transmission Date: 20210420
  Serious: Yes (Life-Threatening, Hospitalization)
  Sender: FDA-Public Use
  Company Number: US-ASTRAZENECA-2021A035732

PATIENT
  Age: 28006 Day
  Sex: Male
  Weight: 87.1 kg

DRUGS (4)
  1. BYETTA [Suspect]
     Active Substance: EXENATIDE
     Indication: DIABETES MELLITUS
     Dosage: ONCE A WEEK
     Route: 058
  2. METFORMIN [Concomitant]
     Active Substance: METFORMIN HYDROCHLORIDE
  3. BYDUREON [Suspect]
     Active Substance: EXENATIDE
     Indication: TYPE 2 DIABETES MELLITUS
     Route: 058
  4. GLUCCOTROL GLIPIZIDE XL [Concomitant]
     Indication: DIABETES MELLITUS
     Route: 048

REACTIONS (13)
  - Coma [Unknown]
  - Cardiac disorder [Unknown]
  - Product use issue [Unknown]
  - Renal disorder [Unknown]
  - Viral infection [Unknown]
  - Amnesia [Unknown]
  - Influenza [Unknown]
  - Empyema [Unknown]
  - Lung disorder [Unknown]
  - Injection site extravasation [Unknown]
  - Pneumonia [Unknown]
  - Illness [Unknown]
  - Pleurisy [Unknown]

NARRATIVE: CASE EVENT DATE: 20210203
